FAERS Safety Report 14707700 (Version 2)
Quarter: 2018Q2

REPORT INFORMATION
  Report Type: Spontaneous
  Country: US (occurrence: US)
  Receive Date: 20180403
  Receipt Date: 20180419
  Transmission Date: 20180711
  Serious: Yes (Death, Hospitalization, Other)
  Sender: FDA-Public Use
  Company Number: US-TORRENT-00005978

PATIENT
  Age: 11 Month
  Sex: Male
  Weight: 10 kg

DRUGS (2)
  1. BENAZEPRIL HCL [Suspect]
     Active Substance: BENAZEPRIL HYDROCHLORIDE
     Indication: PRODUCT USED FOR UNKNOWN INDICATION
     Dosage: INGESTED 40 TO 180 MG BENAZEPRIL
     Route: 048
  2. AMLODIPINE [Suspect]
     Active Substance: AMLODIPINE BESYLATE
     Indication: PRODUCT USED FOR UNKNOWN INDICATION
     Dosage: INGESTED 10 TO 45 MG AMLODIPINE
     Route: 048

REACTIONS (11)
  - Pulmonary oedema [Fatal]
  - Bradycardia [Unknown]
  - Unresponsive to stimuli [Unknown]
  - Metabolic acidosis [Fatal]
  - Circulatory collapse [Fatal]
  - Hypotension [Unknown]
  - Accidental overdose [Fatal]
  - Hyperglycaemia [Unknown]
  - Toxicity to various agents [Fatal]
  - Cardiac arrest [Fatal]
  - Tachycardia [Unknown]
